FAERS Safety Report 6790885-6 (Version None)
Quarter: 2010Q2

REPORT INFORMATION
  Report Type: 
  Country: None (occurrence: None)
  Receive Date: 20100624
  Receipt Date: 20100617
  Transmission Date: 20101027
  Serious: Yes (Hospitalization)
  Sender: FDA-Public Use
  Company Number: B0652467A

PATIENT
  Sex: Female
  Weight: 53 kg

DRUGS (2)
  1. PAZOPANIB [Suspect]
     Indication: NEOPLASM
     Dosage: 400MG PER DAY
     Route: 048
     Dates: start: 20100129
  2. EPIRUBICIN [Suspect]
     Indication: NEOPLASM
     Dosage: 75MGM2 PER DAY
     Route: 042
     Dates: start: 20100128

REACTIONS (2)
  - COUGH [None]
  - PNEUMONITIS [None]
